FAERS Safety Report 19421292 (Version 1)
Quarter: 2021Q2

REPORT INFORMATION
  Report Type: Spontaneous
  Country: US (occurrence: US)
  Receive Date: 20210616
  Receipt Date: 20210616
  Transmission Date: 20210717
  Serious: Yes (Hospitalization, Other)
  Sender: FDA-Public Use
  Company Number: US-CIPLA LTD.-2021US04075

PATIENT

DRUGS (2)
  1. BUPROPION HYDROCHLORIDE XL [Suspect]
     Active Substance: BUPROPION HYDROCHLORIDE
     Dosage: UNK, 16 TABLETS
     Route: 042
  2. BUPROPION HYDROCHLORIDE XL [Suspect]
     Active Substance: BUPROPION HYDROCHLORIDE
     Dosage: UNK, INJECTING BUPROPION FOR A FEW DAYS
     Route: 042

REACTIONS (6)
  - Toxicity to various agents [Unknown]
  - Myalgia [Unknown]
  - Injection site swelling [Unknown]
  - Intentional product misuse [Unknown]
  - Intentional overdose [Unknown]
  - Thrombophlebitis [Unknown]
